FAERS Safety Report 25445342 (Version 1)
Quarter: 2025Q2

REPORT INFORMATION
  Report Type: Spontaneous
  Country: US (occurrence: US)
  Receive Date: 20250617
  Receipt Date: 20250617
  Transmission Date: 20250717
  Serious: No
  Sender: GLAXOSMITHKLINE
  Company Number: US-GSK-US2025AMR073599

PATIENT
  Sex: Female

DRUGS (2)
  1. BENLYSTA [Suspect]
     Active Substance: BELIMUMAB
     Indication: Systemic lupus erythematosus
     Dosage: 200 MG, WE
     Dates: start: 202008
  2. RASUVO [Concomitant]
     Active Substance: METHOTREXATE SODIUM
     Indication: Product used for unknown indication

REACTIONS (1)
  - Drug ineffective [Unknown]
